FAERS Safety Report 8789699 (Version 1)
Quarter: 2012Q4

REPORT INFORMATION
  Report Type: Spontaneous
  Country: US (occurrence: None)
  Receive Date: 20120911
  Receipt Date: 20120911
  Transmission Date: 20130627
  Serious: Yes (Hospitalization)
  Sender: FDA-Public Use
  Company Number: None

PATIENT
  Age: 57 Year
  Sex: Male
  Weight: 120.9 kg

DRUGS (2)
  1. PEGINTERFERON [Suspect]
     Route: 058
     Dates: start: 20120127, end: 20120810
  2. BOCEPREVIR [Suspect]
     Route: 048
     Dates: start: 20120224, end: 20120810

REACTIONS (8)
  - Dyspnoea [None]
  - Thrombocytopenia [None]
  - Leukopenia [None]
  - Anaemia [None]
  - Cough [None]
  - Wheezing [None]
  - Pancytopenia [None]
  - Interstitial lung disease [None]
